FAERS Safety Report 4330038-4 (Version None)
Quarter: 2004Q1

REPORT INFORMATION
  Report Type: 
  Country: None (occurrence: None)
  Receive Date: 20040329
  Receipt Date: 20040317
  Transmission Date: 20041129
  Serious: Yes (Hospitalization)
  Sender: FDA-Public Use
  Company Number: 2004AC00035

PATIENT
  Age: 67 Year
  Sex: Female

DRUGS (3)
  1. ATENOLOL [Suspect]
     Indication: HYPERTENSION
     Dosage: 25 MG DAILY
  2. ATENOLOL [Suspect]
     Indication: HYPERTENSION
     Dosage: 50 MG DAILY
  3. ACE INHIBITOR [Concomitant]

REACTIONS (9)
  - CARDIAC FAILURE CONGESTIVE [None]
  - DIZZINESS [None]
  - DRUG EFFECT DECREASED [None]
  - FAILURE OF IMPLANT [None]
  - LETHARGY [None]
  - MALAISE [None]
  - PALLOR [None]
  - RENAL FAILURE [None]
  - SINUS BRADYCARDIA [None]
